FAERS Safety Report 5485206-5 (Version None)
Quarter: 2007Q4

REPORT INFORMATION
  Report Type: 
  Country: None (occurrence: None)
  Receive Date: 20071009
  Receipt Date: 20071009
  Transmission Date: 20080405
  Serious: No
  Sender: FDA-Public Use
  Company Number: None

PATIENT
  Sex: Male

DRUGS (2)
  1. NEORAL [Suspect]
     Indication: PROPHYLAXIS
     Dosage: 75 MG Q 12 HR ORAL
     Route: 048
     Dates: start: 20000101
  2. NEORAL [Suspect]
     Indication: TRANSPLANT REJECTION
     Dosage: 75 MG Q 12 HR ORAL
     Route: 048
     Dates: start: 20000101

REACTIONS (2)
  - CARDIOMYOPATHY [None]
  - VIRAL INFECTION [None]
